FAERS Safety Report 5319698-9 (Version None)
Quarter: 2007Q2

REPORT INFORMATION
  Report Type: 
  Country: None (occurrence: None)
  Receive Date: 20070503
  Receipt Date: 20070425
  Transmission Date: 20071010
  Serious: Yes (Hospitalization)
  Sender: FDA-Public Use
  Company Number: 2007-01061

PATIENT
  Age: 74 Year
  Sex: Male

DRUGS (7)
  1. TRELSTAR LA (WITH CLIP'N'JECT) (WATSON LABORATORIES) (TRIPTORLIN PAMOA [Suspect]
     Indication: PROSTATE CANCER
     Dosage: 11.25 MG , 1 IN 3 MONTHS, INTRAMUSCULAR
     Route: 030
     Dates: start: 20060701, end: 20070111
  2. FENOFIBRATE [Concomitant]
  3. LIORESAL [Concomitant]
  4. CLONAZEPAM [Concomitant]
  5. NIFEDIPINE [Concomitant]
  6. LYRICA [Concomitant]
  7. KARDEGIC (ACETYLSALICYLIC LYSINE) [Concomitant]

REACTIONS (1)
  - HEPATITIS [None]
